FAERS Safety Report 4873780-9 (Version None)
Quarter: 2006Q1

REPORT INFORMATION
  Report Type: 
  Country: None (occurrence: None)
  Receive Date: 20060103
  Receipt Date: 20060103
  Transmission Date: 20060701
  Serious: No
  Sender: FDA-Public Use
  Company Number: None

PATIENT
  Age: 30 Year
  Sex: Female
  Weight: 56 kg

DRUGS (1)
  1. ROACCUTANE        ROCHE [Suspect]
     Indication: ACNE
     Dosage: NORMAL DOSE DURING ONE YEAR    BUCCAL
     Route: 002
     Dates: start: 19930101, end: 19931231

REACTIONS (5)
  - CROHN'S DISEASE [None]
  - FATIGUE [None]
  - IRRITABLE BOWEL SYNDROME [None]
  - MENTAL DISORDER [None]
  - PARANOIA [None]
